FAERS Safety Report 8639667 (Version 3)
Quarter: 2013Q1

REPORT INFORMATION
  Report Type: Spontaneous
  Country: CA (occurrence: CA)
  Receive Date: 20120627
  Receipt Date: 20130123
  Transmission Date: 20140127
  Serious: Yes (Other)
  Sender: FDA-Public Use
  Company Number: CA-PFIZER INC-2012110009

PATIENT
  Age: 63 Year
  Sex: Male

DRUGS (4)
  1. EFFEXOR [Suspect]
     Indication: POST-TRAUMATIC STRESS DISORDER
     Dosage: 225 MG, 1X/DAY (IN THE MORNING)
  2. EFFEXOR [Suspect]
     Indication: DEPRESSION
     Dosage: 150 MG, IN THE MORNING
  3. PRISTIQ [Suspect]
     Indication: POST-TRAUMATIC STRESS DISORDER
     Dosage: 50 MG, UNK
  4. PRISTIQ [Suspect]
     Indication: DEPRESSION
     Dosage: 50 MG, 1X/DAY (IN THE MORNING)

REACTIONS (8)
  - Depression [Not Recovered/Not Resolved]
  - Malaise [Not Recovered/Not Resolved]
  - Fatigue [Not Recovered/Not Resolved]
  - Somnolence [Not Recovered/Not Resolved]
  - Anxiety [Recovering/Resolving]
  - Drug ineffective [Unknown]
  - Nightmare [Recovered/Resolved]
  - Flashback [Recovered/Resolved]
